FAERS Safety Report 21410521 (Version 1)
Quarter: 2022Q4

REPORT INFORMATION
  Report Type: Other
  Country: RS (occurrence: None)
  Receive Date: 20221005
  Receipt Date: 20221005
  Transmission Date: 20230112
  Serious: Yes (Hospitalization)
  Sender: FDA-Public Use
  Company Number: RS-ROCHE-3193916

PATIENT
  Age: 58 Year
  Sex: Female

DRUGS (5)
  1. RITUXIMAB [Suspect]
     Active Substance: RITUXIMAB
     Indication: Immunosuppression
     Route: 042
     Dates: start: 201006
  2. TOCILIZUMAB [Suspect]
     Active Substance: TOCILIZUMAB
     Indication: COVID-19
     Route: 065
  3. CHLOROQUINE PHOSPHATE [Concomitant]
     Active Substance: CHLOROQUINE PHOSPHATE
  4. METHOTREXATE [Concomitant]
     Active Substance: METHOTREXATE
  5. ETANERCEPT [Concomitant]
     Active Substance: ETANERCEPT

REACTIONS (2)
  - COVID-19 [Unknown]
  - Off label use [Unknown]
